FAERS Safety Report 8883107 (Version 3)
Quarter: 2013Q3

REPORT INFORMATION
  Report Type: Spontaneous
  Country: US (occurrence: US)
  Receive Date: 20121103
  Receipt Date: 20130822
  Transmission Date: 20140515
  Serious: No
  Sender: FDA-Public Use
  Company Number: US-ASTRAZENECA-2012SE80391

PATIENT
  Age: 75 Year
  Sex: Female
  Weight: 94.8 kg

DRUGS (16)
  1. NEXIUM [Suspect]
     Route: 048
     Dates: start: 20110621
  2. SYMBICORT [Suspect]
     Route: 055
     Dates: start: 20110908
  3. ZOCOR [Concomitant]
     Dosage: UD
  4. XIFAXAN [Concomitant]
     Dosage: 550 MG 1 T PO BID, AS DIRECTED
     Route: 048
     Dates: start: 20120619
  5. VICODIN [Concomitant]
     Dosage: AS DIRECTED
  6. VERTIN-32 [Concomitant]
     Dates: start: 20110908
  7. VALIUM [Concomitant]
     Dates: start: 20110908
  8. SYNTHROID [Concomitant]
     Dates: start: 20110908
  9. PRIMIDONE [Concomitant]
     Dates: start: 20110310
  10. LYRICA [Concomitant]
     Dosage: UD
  11. HYOSCYAMINE SULFATE [Concomitant]
     Dates: start: 20110621
  12. HYDROCHLOROTHIAZIDE [Concomitant]
     Dates: start: 20110908
  13. EXFORGE [Concomitant]
     Dosage: 10 MG-160 MG
     Dates: start: 20110310
  14. CULTURELLE [Concomitant]
     Dates: start: 20111201
  15. BABY ASPIRIN [Concomitant]
     Dates: start: 20110908
  16. ALIGN [Concomitant]
     Dosage: IN MORNING
     Dates: start: 20110908

REACTIONS (24)
  - Pneumonia [Unknown]
  - Gastrooesophageal reflux disease [Unknown]
  - Adverse event [Unknown]
  - Hiatus hernia [Unknown]
  - Change of bowel habit [Unknown]
  - Overgrowth bacterial [Unknown]
  - Asthma [Recovered/Resolved]
  - Coronary artery disease [Unknown]
  - Dyspnoea [Recovered/Resolved]
  - Insomnia [Unknown]
  - Weight increased [Unknown]
  - Back pain [Recovered/Resolved]
  - Arthropathy [Recovered/Resolved]
  - Bone disorder [Recovered/Resolved]
  - Amnesia [Recovered/Resolved]
  - Contusion [Unknown]
  - Cough [Recovered/Resolved]
  - Dysphonia [Recovered/Resolved]
  - Hypertension [Unknown]
  - Dermatitis contact [Unknown]
  - Anxiety [Recovered/Resolved]
  - Diarrhoea [Unknown]
  - Myalgia [Unknown]
  - Depressed mood [Unknown]
